FAERS Safety Report 7078152-7 (Version None)
Quarter: 2010Q4

REPORT INFORMATION
  Report Type: 
  Country: None (occurrence: None)
  Receive Date: 20101102
  Receipt Date: 20101025
  Transmission Date: 20110411
  Serious: Yes (Hospitalization)
  Sender: FDA-Public Use
  Company Number: BE-TEVA-226909ISR

PATIENT
  Sex: Male

DRUGS (19)
  1. PREDNISOLONE [Suspect]
     Indication: PROSTATE CANCER
     Route: 048
     Dates: start: 20081104, end: 20090421
  2. PREDNISOLONE [Suspect]
     Route: 048
     Dates: start: 20090324, end: 20090408
  3. PREDNISOLONE [Suspect]
     Route: 048
     Dates: start: 20090409, end: 20090421
  4. ABIRATERONE ACETATE [Suspect]
     Indication: PROSTATE CANCER
     Route: 048
     Dates: start: 20081104, end: 20090412
  5. MOLSIDOMINE [Concomitant]
     Indication: PROPHYLAXIS
     Route: 048
     Dates: start: 19991201
  6. ACETYLSALICYLIC ACID [Concomitant]
     Indication: CORONARY ARTERY BYPASS
     Route: 048
     Dates: start: 19991201
  7. ZOLEDRONIC ACID [Concomitant]
     Indication: METASTASES TO BONE
     Route: 042
     Dates: start: 20070919
  8. PHENOBARBITAL [Concomitant]
     Indication: INSOMNIA
     Route: 048
     Dates: start: 19960101, end: 20090404
  9. FUROSEMIDE [Concomitant]
     Indication: OEDEMA PERIPHERAL
     Route: 048
     Dates: start: 20070101, end: 20090414
  10. PARACETAMOL [Concomitant]
     Indication: BACK PAIN
     Route: 048
     Dates: start: 20081105
  11. CELIPROLOL [Concomitant]
     Indication: HYPERTENSION
     Route: 048
     Dates: start: 20090127
  12. LISINOPRIL [Concomitant]
     Indication: HYPERTENSION
     Route: 048
     Dates: start: 20090325
  13. BICALUTAMIDE [Concomitant]
     Indication: PROSTATE CANCER
     Route: 048
     Dates: start: 20090424, end: 20090518
  14. TRIPTORELIN [Concomitant]
     Indication: PROSTATE CANCER
     Route: 030
     Dates: start: 20081104
  15. SULPIRIDE [Concomitant]
     Indication: INSOMNIA
     Route: 048
     Dates: start: 20090421, end: 20090503
  16. ISOSORBIDE DINITRATE [Concomitant]
     Indication: ANGINA PECTORIS
     Route: 048
     Dates: start: 20090101
  17. PANADEINE CO [Concomitant]
     Indication: CANCER PAIN
     Dates: start: 20090506
  18. PRANOPROFEN [Concomitant]
     Indication: BLEPHARITIS
     Route: 061
     Dates: start: 20090508
  19. FUSIDIC ACID [Concomitant]
     Indication: BLEPHARITIS
     Route: 061
     Dates: start: 20090513

REACTIONS (6)
  - CHRONIC OBSTRUCTIVE PULMONARY DISEASE [None]
  - DYSPNOEA [None]
  - FATIGUE [None]
  - ISCHAEMIC CARDIOMYOPATHY [None]
  - MALIGNANT NEOPLASM PROGRESSION [None]
  - PROSTATE CANCER METASTATIC [None]
